FAERS Safety Report 25010593 (Version 1)
Quarter: 2025Q1

REPORT INFORMATION
  Report Type: Spontaneous
  Country: US (occurrence: US)
  Receive Date: 20250225
  Receipt Date: 20250225
  Transmission Date: 20250409
  Serious: Yes (Other)
  Sender: ELI LILLY AND COMPANY
  Company Number: US-ELI_LILLY_AND_COMPANY-US202502012771

PATIENT
  Age: 52 Year
  Sex: Male

DRUGS (3)
  1. INSULIN LISPRO [Suspect]
     Active Substance: INSULIN LISPRO
     Indication: Type 1 diabetes mellitus
     Route: 065
     Dates: start: 1980
  2. INSULIN LISPRO [Suspect]
     Active Substance: INSULIN LISPRO
     Dosage: 18 U, TID (12 TO 18)
     Route: 058
  3. INSULIN LISPRO [Suspect]
     Active Substance: INSULIN LISPRO
     Dosage: 40 U, TID (30 TO 40)
     Route: 058

REACTIONS (7)
  - Macular degeneration [Not Recovered/Not Resolved]
  - Visual impairment [Not Recovered/Not Resolved]
  - Sleep disorder due to a general medical condition [Unknown]
  - Weight decreased [Unknown]
  - Sluggishness [Unknown]
  - Blood glucose increased [Recovering/Resolving]
  - Drug ineffective [Unknown]

NARRATIVE: CASE EVENT DATE: 20050101
